FAERS Safety Report 5988467-9 (Version None)
Quarter: 2008Q4

REPORT INFORMATION
  Report Type: 
  Country: None (occurrence: None)
  Receive Date: 20081210
  Receipt Date: 20081103
  Transmission Date: 20090506
  Serious: Yes (Hospitalization)
  Sender: FDA-Public Use
  Company Number: GB-ABBOTT-08P-167-0491736-00

PATIENT
  Age: 56 Year
  Sex: Female

DRUGS (4)
  1. ERYTHROMYCIN [Suspect]
     Indication: DRUG USE FOR UNKNOWN INDICATION
     Route: 065
  2. PEGFILGRASTIM [Suspect]
     Indication: CHEMOTHERAPY
     Route: 058
     Dates: start: 20070612
  3. CAPECITABINE [Concomitant]
     Indication: DRUG USE FOR UNKNOWN INDICATION
     Dates: start: 20070612
  4. EPIRUBICIN [Concomitant]
     Indication: CHEMOTHERAPY
     Dates: start: 20070612

REACTIONS (3)
  - DEHYDRATION [None]
  - DIARRHOEA [None]
  - VOMITING [None]
